FAERS Safety Report 15791805 (Version 1)
Quarter: 2019Q1

REPORT INFORMATION
  Report Type: Spontaneous
  Country: US (occurrence: US)
  Receive Date: 20190105
  Receipt Date: 20190105
  Transmission Date: 20190417
  Serious: No
  Sender: FDA-Public Use
  Company Number: US-TEVA-2018-US-990333

PATIENT
  Age: 80 Year
  Sex: Male
  Weight: 58.96 kg

DRUGS (3)
  1. CETIRIZINE W/PSEUDOEPHEDRINE [Suspect]
     Active Substance: CETIRIZINE HYDROCHLORIDE\PSEUDOEPHEDRINE HYDROCHLORIDE
     Indication: NASAL CONGESTION
     Dosage: CETIRIZINE HYDROCHLORIDE 5 MG PSEUDOEPHEDRINE HYDROCHLORIDE 120 MG TABLET EVERY NIGHT
     Route: 048
     Dates: end: 201811
  2. PSEUDOEPHEDRINE HYDROCHLORIDE. [Suspect]
     Active Substance: PSEUDOEPHEDRINE HYDROCHLORIDE
     Indication: NASAL CONGESTION
     Dosage: 120 MG, QHS, PRN
     Route: 048
     Dates: end: 20181205
  3. GUAIFENESIN. [Suspect]
     Active Substance: GUAIFENESIN
     Indication: RESPIRATORY TRACT CONGESTION
     Dosage: 1/2 TABLET, PRN
     Route: 048

REACTIONS (2)
  - Tinnitus [Unknown]
  - Product administered to patient of inappropriate age [Unknown]

NARRATIVE: CASE EVENT DATE: 2018
